FAERS Safety Report 6615823-8 (Version None)
Quarter: 2010Q1

REPORT INFORMATION
  Report Type: 
  Country: None (occurrence: None)
  Receive Date: 20100305
  Receipt Date: 20100224
  Transmission Date: 20100710
  Serious: Yes (Hospitalization)
  Sender: FDA-Public Use
  Company Number: US-BRISTOL-MYERS SQUIBB COMPANY-14990626

PATIENT
  Age: 68 Year
  Sex: Female
  Weight: 80 kg

DRUGS (16)
  1. FLUOROURACIL [Suspect]
     Indication: COLON CANCER
     Dosage: RECENT DOSE:28JAN10
     Route: 042
     Dates: start: 20090908
  2. LEUCOVORIN CALCIUM [Suspect]
     Indication: COLON CANCER
     Dosage: RECENT DOSE:26JAN10
     Route: 042
     Dates: start: 20090908
  3. ELOXATIN [Suspect]
     Indication: COLON CANCER
     Dosage: RECENT DOSE:26JAN10
     Route: 042
     Dates: start: 20090908
  4. TRIAMCINOLONE [Suspect]
  5. NEXIUM [Suspect]
  6. ACIDOPHILUS [Concomitant]
  7. ACTONEL [Concomitant]
  8. AMLODIPINE [Concomitant]
  9. CALCIUM [Concomitant]
  10. DIOVAN [Concomitant]
  11. IRON [Concomitant]
  12. LAMOTRIGINE [Concomitant]
  13. SOLU-MEDROL [Concomitant]
  14. ZOFRAN [Concomitant]
  15. DOXYCYCLINE HCL [Concomitant]
  16. PROBIOTICA [Concomitant]

REACTIONS (8)
  - ABDOMINAL PAIN [None]
  - ACTIVATED PARTIAL THROMBOPLASTIN TIME ABNORMAL [None]
  - HAEMOGLOBIN ABNORMAL [None]
  - HYPOTENSION [None]
  - INTERNATIONAL NORMALISED RATIO ABNORMAL [None]
  - OESOPHAGEAL HAEMORRHAGE [None]
  - OESOPHAGEAL ULCER [None]
  - SEPSIS [None]
